FAERS Safety Report 5163599-6 (Version None)
Quarter: 2006Q4

REPORT INFORMATION
  Report Type: 
  Country: None (occurrence: None)
  Receive Date: 20061128
  Receipt Date: 20061128
  Transmission Date: 20070319
  Serious: Yes (Disabling)
  Sender: FDA-Public Use
  Company Number: None

PATIENT
  Sex: Male

DRUGS (1)
  1. REMERON [Suspect]
     Indication: GENERALISED ANXIETY DISORDER
     Dosage: 15MG  HS  PO
     Route: 048
     Dates: start: 20061029

REACTIONS (2)
  - MYDRIASIS [None]
  - SOMNOLENCE [None]
